FAERS Safety Report 14554426 (Version 1)
Quarter: 2018Q1

REPORT INFORMATION
  Report Type: Spontaneous
  Country: US (occurrence: US)
  Receive Date: 20180217
  Receipt Date: 20180217
  Transmission Date: 20180509
  Serious: Yes (Other)
  Sender: FDA-Public Use
  Company Number: None

PATIENT
  Age: 50 Year
  Sex: Female
  Weight: 54 kg

DRUGS (5)
  1. LEVOTHYROXINE. [Concomitant]
     Active Substance: LEVOTHYROXINE
  2. IMURIN [Concomitant]
  3. REMICADE [Suspect]
     Active Substance: INFLIXIMAB
  4. PREDNISONE. [Concomitant]
     Active Substance: PREDNISONE
  5. CENTRUM CALCIUM AND VITAMIN [Concomitant]

REACTIONS (5)
  - Urticaria [None]
  - Erythema [None]
  - Pruritus [None]
  - Dry skin [None]
  - Skin exfoliation [None]

NARRATIVE: CASE EVENT DATE: 20180201
